FAERS Safety Report 8303711-0 (Version None)
Quarter: 2012Q2

REPORT INFORMATION
  Report Type: 
  Country: None (occurrence: None)
  Receive Date: 20120418
  Receipt Date: 20120327
  Transmission Date: 20120825
  Serious: Yes (Death, Life-Threatening, Hospitalization, Other)
  Sender: FDA-Public Use
  Company Number: IE-025702

PATIENT
  Age: 82 Year
  Sex: Male

DRUGS (3)
  1. CHLORAMBUCIL [Suspect]
     Indication: CHRONIC LYMPHOCYTIC LEUKAEMIA
     Dosage: 10 MGM2 DAYS 1-7 EVERY 28 DAYS
     Route: 048
     Dates: start: 20110602
  2. OFATUMUMAB [Suspect]
     Indication: PNEUMONITIS
     Dosage: 300 MG AT DAY 1, 1000 MG AT DAY 8 AND 1000MG EVERY 28 DAYS
     Route: 042
     Dates: start: 20110602
  3. TINZAPARIN [Concomitant]

REACTIONS (1)
  - PNEUMONITIS [None]
